FAERS Safety Report 6269589-4 (Version None)
Quarter: 2009Q3

REPORT INFORMATION
  Report Type: 
  Country: None (occurrence: None)
  Receive Date: 20090714
  Receipt Date: 20090706
  Transmission Date: 20100115
  Serious: Yes (Death)
  Sender: FDA-Public Use
  Company Number: CHPA2009US14807

PATIENT
  Age: 28 Year
  Sex: Male
  Weight: 70.3 kg

DRUGS (1)
  1. ACETYLSALICYLIC ACID SRT [Suspect]
     Dosage: ORAL
     Route: 048

REACTIONS (19)
  - AGITATION [None]
  - BLOOD PRESSURE INCREASED [None]
  - COMPLETED SUICIDE [None]
  - DYSPNOEA [None]
  - ELECTROCARDIOGRAM ABNORMAL [None]
  - ELECTROMECHANICAL DISSOCIATION [None]
  - ENDOTRACHEAL INTUBATION [None]
  - HEART RATE INCREASED [None]
  - HYPERHIDROSIS [None]
  - INCORRECT DOSE ADMINISTERED [None]
  - OXYGEN SATURATION DECREASED [None]
  - PH URINE DECREASED [None]
  - PYREXIA [None]
  - RESPIRATORY DISTRESS [None]
  - RESPIRATORY RATE INCREASED [None]
  - SINUS TACHYCARDIA [None]
  - TACHYPNOEA [None]
  - THERAPEUTIC AGENT TOXICITY [None]
  - TINNITUS [None]
